FAERS Safety Report 9455848 (Version 1)
Quarter: 2013Q3

REPORT INFORMATION
  Report Type: Spontaneous
  Country: CH (occurrence: None)
  Receive Date: 20130808
  Receipt Date: 20130808
  Transmission Date: 20140515
  Serious: Yes (Other)
  Sender: FDA-Public Use
  Company Number: 20130427

PATIENT
  Age: 45 Year
  Sex: Female
  Weight: 58 kg

DRUGS (7)
  1. FERINJECT [Suspect]
     Indication: IRON DEFICIENCY ANAEMIA
     Dosage: OVER 20
     Route: 041
     Dates: start: 20130411, end: 20130411
  2. CETIRIZIN [Concomitant]
  3. NASONEX [Concomitant]
  4. PALEXIA RET [Concomitant]
  5. PANTOPRAZOL [Concomitant]
  6. VENLAFAXIN [Concomitant]
  7. IBUPROFEN [Concomitant]

REACTIONS (4)
  - Asthma [None]
  - Agitation [None]
  - Anxiety [None]
  - Bronchospasm [None]
